FAERS Safety Report 16031132 (Version 3)
Quarter: 2019Q2

REPORT INFORMATION
  Report Type: Spontaneous
  Country: RO (occurrence: RO)
  Receive Date: 20190304
  Receipt Date: 20190517
  Transmission Date: 20190711
  Serious: Yes (Hospitalization, Other)
  Sender: FDA-Public Use
  Company Number: RO-ABBVIE-19K-135-2681556-00

PATIENT
  Sex: Female
  Weight: 85 kg

DRUGS (11)
  1. AZATHIOPRINE. [Concomitant]
     Active Substance: AZATHIOPRINE
     Indication: PRODUCT USED FOR UNKNOWN INDICATION
     Dates: start: 2012, end: 2013
  2. HUMIRA [Suspect]
     Active Substance: ADALIMUMAB
     Indication: CROHN^S DISEASE
     Dosage: FORM STRENGTH: 2.857MG/0.02 ML
     Route: 058
     Dates: start: 201204, end: 20181109
  3. NEBIVOLOL. [Concomitant]
     Active Substance: NEBIVOLOL
     Indication: HYPERTENSION
     Route: 048
  4. HUMIRA [Suspect]
     Active Substance: ADALIMUMAB
     Indication: COLITIS ULCERATIVE
  5. CANDESARTAN. [Concomitant]
     Active Substance: CANDESARTAN
     Indication: HYPERTENSION
     Route: 048
  6. OLICARD [Concomitant]
     Active Substance: ISOSORBIDE MONONITRATE
     Indication: HYPERTENSION
     Route: 048
  7. SIMVACARD [Concomitant]
     Active Substance: SIMVASTATIN
     Indication: HYPERTENSION
     Route: 048
  8. CONTROLOC [Concomitant]
     Active Substance: PANTOPRAZOLE SODIUM
     Indication: GASTROOESOPHAGEAL REFLUX DISEASE
     Route: 048
  9. TERTENSIF [Concomitant]
     Active Substance: INDAPAMIDE
     Indication: HYPERTENSION
     Route: 048
  10. CORTICOSTEROIDS [Concomitant]
     Active Substance: CORTICOSTEROID NOS
     Indication: PRODUCT USED FOR UNKNOWN INDICATION
     Dates: start: 2012, end: 2013
  11. HUMIRA [Suspect]
     Active Substance: ADALIMUMAB
     Indication: INFLAMMATORY BOWEL DISEASE

REACTIONS (4)
  - Diarrhoea [Not Recovered/Not Resolved]
  - Abdominal pain [Not Recovered/Not Resolved]
  - Breast cancer female [Unknown]
  - Haemoglobin decreased [Recovered/Resolved]

NARRATIVE: CASE EVENT DATE: 2018
